FAERS Safety Report 6443687-4 (Version None)
Quarter: 2009Q4

REPORT INFORMATION
  Report Type: 
  Country: None (occurrence: None)
  Receive Date: 20091117
  Receipt Date: 20091104
  Transmission Date: 20100525
  Serious: Yes (Hospitalization, Other)
  Sender: FDA-Public Use
  Company Number: FR-MYLANLABS-2008S1019233

PATIENT
  Sex: Female

DRUGS (9)
  1. MERCAPTAMINE BITARTRATE [Suspect]
     Indication: CYSTINOSIS
     Dates: start: 20001228
  2. MERCAPTAMINE BITARTRATE [Suspect]
     Dosage: QD
  3. MERCAPTAMINE BITARTRATE [Suspect]
     Dosage: QD
  4. MERCAPTAMINE BITARTRATE [Suspect]
     Dosage: QD
  5. MERCAPTAMINE BITARTRATE [Suspect]
     Dosage: QD
  6. MERCAPTAMINE BITARTRATE [Suspect]
     Dosage: QD
  7. MERCAPTAMINE BITARTRATE [Suspect]
     Dosage: QD
  8. MERCAPTAMINE BITARTRATE [Suspect]
     Dosage: QD
  9. OMEPRAZOLE [Concomitant]
     Dates: start: 20030301, end: 20051001

REACTIONS (9)
  - ASTHENIA [None]
  - CONJUNCTIVITIS [None]
  - DECREASED APPETITE [None]
  - DIARRHOEA [None]
  - HYPERSOMNIA [None]
  - NAUSEA [None]
  - PHARYNGITIS [None]
  - VIRAL INFECTION [None]
  - VOMITING [None]
